FAERS Safety Report 11789975 (Version 1)
Quarter: 2015Q4

REPORT INFORMATION
  Report Type: Spontaneous
  Country: RU (occurrence: RU)
  Receive Date: 20151201
  Receipt Date: 20151201
  Transmission Date: 20160305
  Serious: Yes (Other)
  Sender: FDA-Public Use
  Company Number: RU-BAYER-2015-471806

PATIENT
  Age: 53 Year
  Sex: Female

DRUGS (1)
  1. ANGELIQ [Suspect]
     Active Substance: DROSPIRENONE\ESTRADIOL
     Dosage: UNK
     Route: 048
     Dates: start: 201503

REACTIONS (2)
  - Visual acuity reduced [None]
  - Cataract [None]

NARRATIVE: CASE EVENT DATE: 2015
